FAERS Safety Report 16104588 (Version 2)
Quarter: 2019Q2

REPORT INFORMATION
  Report Type: Spontaneous
  Country: US (occurrence: US)
  Receive Date: 20190322
  Receipt Date: 20190508
  Transmission Date: 20190711
  Serious: No
  Sender: FDA-Public Use
  Company Number: US-BAUSCH-BL-2019-007085

PATIENT
  Age: 24 Year
  Sex: Female

DRUGS (3)
  1. ARESTIN [Suspect]
     Active Substance: MINOCYCLINE HYDROCHLORIDE
     Dosage: LOWER AND UPPER RIGHT TEETH, USED ONCE
     Route: 050
     Dates: start: 20181215, end: 20181215
  2. ARESTIN [Suspect]
     Active Substance: MINOCYCLINE HYDROCHLORIDE
     Indication: PRODUCT USED FOR UNKNOWN INDICATION
     Dosage: UPPER AND LOWER LEFT TEETH, USED ONCE
     Route: 050
     Dates: start: 20181208, end: 20181208
  3. TRI-SPRINTEC [Concomitant]
     Active Substance: ETHINYL ESTRADIOL\NORGESTIMATE
     Indication: PRODUCT USED FOR UNKNOWN INDICATION

REACTIONS (2)
  - Loose tooth [Recovered/Resolved]
  - Gingival pruritus [Recovered/Resolved]

NARRATIVE: CASE EVENT DATE: 20190112
